FAERS Safety Report 20475325 (Version 1)
Quarter: 2022Q1

REPORT INFORMATION
  Report Type: Spontaneous
  Country: GB (occurrence: GB)
  Receive Date: 20220215
  Receipt Date: 20220215
  Transmission Date: 20220424
  Serious: Yes (Disabling, Other)
  Sender: FDA-Public Use
  Company Number: GB-MHRA-MED-202202110216569850-MS5WC

PATIENT
  Age: 5 Year
  Sex: Female

DRUGS (2)
  1. BETAMETHASONE DIPROPIONATE [Suspect]
     Active Substance: BETAMETHASONE DIPROPIONATE
     Indication: Eczema infantile
     Dosage: UNK
     Dates: start: 1967
  2. SALICYLIC ACID [Suspect]
     Active Substance: SALICYLIC ACID
     Indication: Eczema infantile
     Dosage: UNK
     Dates: start: 1967

REACTIONS (2)
  - Product prescribing issue [Unknown]
  - Eczema weeping [Recovered/Resolved]

NARRATIVE: CASE EVENT DATE: 19700820
